FAERS Safety Report 18006877 (Version 1)
Quarter: 2020Q3

REPORT INFORMATION
  Report Type: Spontaneous
  Country: IN (occurrence: IN)
  Receive Date: 20200710
  Receipt Date: 20200710
  Transmission Date: 20201103
  Serious: Yes (Other)
  Sender: FDA-Public Use
  Company Number: IN-ALKEM LABORATORIES LIMITED-IN-ALKEM-2020-03516

PATIENT
  Age: 26 Year
  Sex: Male
  Weight: 50 kg

DRUGS (2)
  1. LIDOCAINE. [Suspect]
     Active Substance: LIDOCAINE
     Indication: NASAL CAVITY PACKING
     Dosage: 200 MILLIGRAM
     Route: 065
  2. LIDOCAINE. [Suspect]
     Active Substance: LIDOCAINE
     Indication: LOCAL ANAESTHESIA

REACTIONS (4)
  - Hypoaesthesia oral [Unknown]
  - Toxicity to various agents [Unknown]
  - Restlessness [Unknown]
  - Generalised tonic-clonic seizure [Recovering/Resolving]
